FAERS Safety Report 18157633 (Version 1)
Quarter: 2020Q3

REPORT INFORMATION
  Report Type: Spontaneous
  Country: BR (occurrence: BR)
  Receive Date: 20200817
  Receipt Date: 20200817
  Transmission Date: 20201103
  Serious: No
  Sender: FDA-Public Use
  Company Number: BR-LUPIN PHARMACEUTICALS INC.-2020-04211

PATIENT
  Age: 65 Year
  Sex: Male

DRUGS (3)
  1. TOPIRAMATE TABLETS [Interacting]
     Active Substance: TOPIRAMATE
     Dosage: 1 DOSAGE FORM
     Route: 048
  2. ROSUVASTATIN TABLETS [Suspect]
     Active Substance: ROSUVASTATIN
     Indication: HYPERCHOLESTEROLAEMIA
     Dosage: 1 DOSAGE FORM, QD
     Route: 048
  3. TOPIRAMATE TABLETS [Interacting]
     Active Substance: TOPIRAMATE
     Indication: MIGRAINE
     Dosage: 2 DOSAGE FORM, QD (FOR ONE WEEK)
     Route: 048
     Dates: end: 2020

REACTIONS (4)
  - Myoclonus [Recovered/Resolved]
  - Muscle contractions involuntary [Recovered/Resolved]
  - Drug interaction [Recovered/Resolved]
  - Tremor [Recovered/Resolved]

NARRATIVE: CASE EVENT DATE: 2020
